FAERS Safety Report 9826585 (Version 1)
Quarter: 2014Q1

REPORT INFORMATION
  Report Type: Spontaneous
  Country: US (occurrence: US)
  Receive Date: 20140117
  Receipt Date: 20140117
  Transmission Date: 20141002
  Serious: No
  Sender: FDA-Public Use
  Company Number: US-BIOGENIDEC-2014BI000474

PATIENT
  Age: 55 Year
  Sex: Male

DRUGS (14)
  1. TECFIDERA [Suspect]
     Indication: MULTIPLE SCLEROSIS
     Route: 048
     Dates: start: 201311
  2. RAMIPRIL [Concomitant]
  3. CLONAZEPAM [Concomitant]
  4. SIMVASTATIN [Concomitant]
  5. HYDROCHLOROTHIAZIDE [Concomitant]
  6. WELLBUTRIN SR [Concomitant]
  7. POTASSIUM CITRATE ER [Concomitant]
  8. LEVOTHYROXINE [Concomitant]
  9. LIOTHYRONINE SODIUM [Concomitant]
  10. ADDERALL [Concomitant]
  11. NUVIGIL [Concomitant]
  12. ABILIFY [Concomitant]
  13. PLAVIX [Concomitant]
  14. ULORIC [Concomitant]

REACTIONS (5)
  - Asthenia [Recovered/Resolved]
  - Dysstasia [Recovered/Resolved]
  - Nausea [Unknown]
  - Flushing [Recovered/Resolved]
  - Diarrhoea [Unknown]
